FAERS Safety Report 20817000 (Version 2)
Quarter: 2022Q2

REPORT INFORMATION
  Report Type: Spontaneous
  Country: US (occurrence: US)
  Receive Date: 20220512
  Receipt Date: 20220520
  Transmission Date: 20220721
  Serious: Yes (Other)
  Sender: FDA-Public Use
  Company Number: US-CELLTRION INC.-2022US006092

PATIENT

DRUGS (3)
  1. TRUXIMA [Suspect]
     Active Substance: RITUXIMAB-ABBS
     Indication: Polymyositis
     Dosage: RECEIVES 2 INFUSIONS - 1000 MG EACH EVERY FOUR TO SIX MONTHS. HIS SYMPTOMS DETERMINE WHETHER HE RECE
     Dates: start: 202107
  2. TRUXIMA [Suspect]
     Active Substance: RITUXIMAB-ABBS
     Indication: Lung disorder
     Dosage: 1000 MG DAY 1 AND DAY 15 Q 4 MONTHS
     Dates: start: 20220404
  3. TRUXIMA [Suspect]
     Active Substance: RITUXIMAB-ABBS
     Indication: Interstitial lung disease
     Dosage: 1000 MG DAY 1 AND DAY 15 Q 4 MONTHS
     Dates: start: 20220418

REACTIONS (3)
  - Polymyositis [Unknown]
  - Lung disorder [Unknown]
  - Off label use [Unknown]

NARRATIVE: CASE EVENT DATE: 20210701
